FAERS Safety Report 6847477-X (Version None)
Quarter: 2010Q3

REPORT INFORMATION
  Report Type: 
  Country: None (occurrence: None)
  Receive Date: 20100716
  Receipt Date: 20100705
  Transmission Date: 20110219
  Serious: Yes (Death)
  Sender: FDA-Public Use
  Company Number: JP-PFIZER INC-2010083658

PATIENT
  Age: 81 Year
  Sex: Female

DRUGS (5)
  1. LYRICA [Suspect]
     Indication: POST HERPETIC NEURALGIA
     Dosage: 150 MG, DAILY
     Route: 048
     Dates: start: 20100623
  2. HYPEN [Concomitant]
     Dosage: 400 MG, DAILY
     Route: 048
  3. PREDONINE [Concomitant]
     Dosage: 10 MG, DAILY
     Route: 048
  4. LOXONIN [Concomitant]
     Dosage: UNK
     Route: 048
  5. OLMETEC [Concomitant]
     Dosage: UNK
     Route: 048

REACTIONS (1)
  - LUNG NEOPLASM MALIGNANT [None]
